FAERS Safety Report 5629742-7 (Version None)
Quarter: 2008Q1

REPORT INFORMATION
  Report Type: 
  Country: None (occurrence: None)
  Receive Date: 20080218
  Receipt Date: 20080208
  Transmission Date: 20080703
  Serious: Yes (Death)
  Sender: FDA-Public Use
  Company Number: JP-ASTRAZENECA-2008AP01049

PATIENT
  Age: 33 Year
  Sex: Female

DRUGS (4)
  1. SEROQUEL [Suspect]
     Route: 048
  2. PABRON GOLD [Suspect]
     Route: 048
     Dates: start: 20070602, end: 20070602
  3. PABRON-S [Suspect]
     Route: 048
     Dates: start: 20070602, end: 20070602
  4. MYSLEE [Concomitant]
     Route: 048

REACTIONS (4)
  - ALTERED STATE OF CONSCIOUSNESS [None]
  - COMPLETED SUICIDE [None]
  - HEPATIC FAILURE [None]
  - OVERDOSE [None]
